FAERS Safety Report 18639957 (Version 1)
Quarter: 2020Q4

REPORT INFORMATION
  Report Type: Spontaneous
  Country: US (occurrence: US)
  Receive Date: 20201220
  Receipt Date: 20201220
  Transmission Date: 20210114
  Serious: No
  Sender: FDA-Public Use
  Company Number: US-PACIRA-202000064

PATIENT
  Age: 31 Year
  Sex: Female

DRUGS (3)
  1. EXPAREL [Suspect]
     Active Substance: BUPIVACAINE
     Indication: APPENDICECTOMY
     Dosage: 20 ML OF EXPAREL EXPANDED WITH 20 ML OF 0.25% MARCAINE
     Dates: start: 20200315, end: 20200315
  2. LIDOCAINE HYDROCHLORIDE AND EPINEPHRINE BITARTRATE [Suspect]
     Active Substance: EPINEPHRINE BITARTRATE\LIDOCAINE HYDROCHLORIDE
     Indication: INCISION SITE COMPLICATION
     Dosage: 4 ML ADMINISTERED AROUND 9:30 PM AT A SURGICAL SITE WHERE EXPAREL WAS PREVIOUSLY ADMINISTERED
     Dates: start: 20200315, end: 20200315
  3. MARCAINE [Suspect]
     Active Substance: BUPIVACAINE HYDROCHLORIDE
     Indication: APPENDICECTOMY
     Dosage: 20 ML OF EXPAREL EXPANDED WITH 20 ML OF 0.25% MARCAINE
     Dates: start: 20200315, end: 20200315

REACTIONS (2)
  - Labelled drug-drug interaction medication error [Unknown]
  - Inappropriate schedule of product administration [Unknown]
